FAERS Safety Report 4562806-8 (Version None)
Quarter: 2005Q1

REPORT INFORMATION
  Report Type: 
  Country: None (occurrence: None)
  Receive Date: 20050127
  Receipt Date: 20050126
  Transmission Date: 20050727
  Serious: Yes (Death, Hospitalization)
  Sender: FDA-Public Use
  Company Number: US-GLAXOSMITHKLINE-A0542259A

PATIENT
  Age: 51 Year
  Sex: Female

DRUGS (5)
  1. MELPHALAN [Suspect]
     Indication: MULTIPLE MYELOMA
     Route: 042
     Dates: start: 20041013
  2. THALIDOMIDE [Suspect]
     Indication: MULTIPLE MYELOMA
     Dosage: 50MG PER DAY
     Route: 048
     Dates: start: 20041116, end: 20041201
  3. DEXAMETHASONE [Suspect]
     Dosage: 20MG CYCLIC
     Route: 048
     Dates: start: 20041116, end: 20041201
  4. CYTARABINE [Suspect]
     Route: 037
     Dates: start: 20041229
  5. HYDROCORTISONE [Suspect]
     Route: 037
     Dates: start: 20041229

REACTIONS (9)
  - CONVULSION [None]
  - DISEASE PROGRESSION [None]
  - DIZZINESS [None]
  - DYSARTHRIA [None]
  - FALL [None]
  - HEADACHE [None]
  - LOSS OF CONSCIOUSNESS [None]
  - NERVOUS SYSTEM DISORDER [None]
  - SYNCOPE [None]
